FAERS Safety Report 5445771-0 (Version None)
Quarter: 2007Q3

REPORT INFORMATION
  Report Type: 
  Country: None (occurrence: None)
  Receive Date: 20070904
  Receipt Date: 20070822
  Transmission Date: 20080115
  Serious: Yes (Hospitalization)
  Sender: FDA-Public Use
  Company Number: CHNY2007AR02899

PATIENT
  Sex: Female

DRUGS (2)
  1. NICOTINE [Suspect]
     Indication: SMOKING CESSATION THERAPY
     Dosage: 7 MG, QD, TRANSDERMAL; 21 MG, QD, TRANSDERMAL
     Route: 062
     Dates: start: 20060101
  2. NICOTINE [Suspect]
     Indication: SMOKING CESSATION THERAPY
     Dosage: 7 MG, QD, TRANSDERMAL; 21 MG, QD, TRANSDERMAL
     Route: 062
     Dates: start: 20070701

REACTIONS (1)
  - PNEUMONIA [None]
